FAERS Safety Report 4715419-9 (Version None)
Quarter: 2005Q3

REPORT INFORMATION
  Report Type: 
  Country: None (occurrence: None)
  Receive Date: 20050715
  Receipt Date: 20050715
  Transmission Date: 20060218
  Serious: No
  Sender: FDA-Public Use
  Company Number: None

PATIENT
  Age: 67 Year
  Sex: Female
  Weight: 61.6892 kg

DRUGS (10)
  1. ENBREL [Suspect]
     Indication: RHEUMATOID ARTHRITIS
     Dosage: 25 MG TWICE A WEEK
     Dates: start: 19990201, end: 20030501
  2. METHOTREXATE [Concomitant]
  3. OXYCONTIN [Concomitant]
  4. REMICADE [Concomitant]
  5. PREDNISONE [Concomitant]
  6. ZOLOFT [Concomitant]
  7. ATIVA [Concomitant]
  8. TOPROL-XL [Concomitant]
  9. LISINOPRIL [Concomitant]
  10. DOVONIX CREAM [Concomitant]

REACTIONS (2)
  - CONDITION AGGRAVATED [None]
  - PSORIASIS [None]
